FAERS Safety Report 6221836-0 (Version None)
Quarter: 2009Q2

REPORT INFORMATION
  Report Type: 
  Country: None (occurrence: None)
  Receive Date: 20090608
  Receipt Date: 20090601
  Transmission Date: 20091009
  Serious: Yes (Other)
  Sender: FDA-Public Use
  Company Number: US-WYE-H09554509

PATIENT
  Sex: Female

DRUGS (3)
  1. PREMPRO [Suspect]
     Indication: HOT FLUSH
     Dosage: 0.3MG/1.5 MG, ORAL; 0.3 MG/MEDROXYPROGESTERON ACETATE 1.5MG, TABLET)
     Route: 048
     Dates: start: 20080201
  2. SYNTHROID [Concomitant]
  3. NEXIUM [Concomitant]

REACTIONS (4)
  - BLOOD THYROID STIMULATING HORMONE DECREASED [None]
  - CONDITION AGGRAVATED [None]
  - THYROID DISORDER [None]
  - TRI-IODOTHYRONINE ABNORMAL [None]
